FAERS Safety Report 14519864 (Version 1)
Quarter: 2018Q1

REPORT INFORMATION
  Report Type: Spontaneous
  Country: US (occurrence: US)
  Receive Date: 20180210
  Receipt Date: 20180210
  Transmission Date: 20180509
  Serious: Yes (Death)
  Sender: FDA-Public Use
  Company Number: None

PATIENT
  Sex: Female
  Weight: 76.05 kg

DRUGS (2)
  1. LEVOFLOXACIN. [Suspect]
     Active Substance: LEVOFLOXACIN
     Indication: SINUSITIS
     Dosage: ?          QUANTITY:10 TABLET(S);?
     Route: 048
     Dates: start: 20130924
  2. PREDNISONE 20 MG [Suspect]
     Active Substance: PREDNISONE
     Indication: SINUSITIS
     Dosage: ?          QUANTITY:5 TABLET(S);?
     Route: 048
     Dates: start: 20130924

REACTIONS (14)
  - Colorectal cancer [None]
  - Malignant polyp [None]
  - Frequent bowel movements [None]
  - Diverticulum [None]
  - Metastases to lung [None]
  - Sinusitis [None]
  - Haematochezia [None]
  - Proctalgia [None]
  - Diarrhoea [None]
  - Rectal haemorrhage [None]
  - Abnormal faeces [None]
  - Metastases to liver [None]
  - Rectal polyp [None]
  - Metastases to bone [None]

NARRATIVE: CASE EVENT DATE: 20130924
